FAERS Safety Report 13906785 (Version 6)
Quarter: 2017Q4

REPORT INFORMATION
  Report Type: Report from Study
  Country: AU (occurrence: AU)
  Receive Date: 20170825
  Receipt Date: 20171002
  Transmission Date: 20180320
  Serious: Yes (Death, Life-Threatening, Hospitalization)
  Sender: FDA-Public Use
  Company Number: AU-PFIZER INC-2017366458

PATIENT
  Age: 70 Year
  Sex: Female
  Weight: 123 kg

DRUGS (6)
  1. CARBOPLATIN. [Suspect]
     Active Substance: CARBOPLATIN
     Indication: NON-SMALL CELL LUNG CANCER
     Dosage: 516 MG, UNK
     Route: 042
     Dates: start: 20161214
  2. CARBOPLATIN. [Suspect]
     Active Substance: CARBOPLATIN
     Dosage: 516 MG, UNK
     Route: 042
  3. CARBOPLATIN. [Suspect]
     Active Substance: CARBOPLATIN
     Dosage: 516 MG, UNK
     Route: 042
  4. CARBOPLATIN. [Suspect]
     Active Substance: CARBOPLATIN
     Dosage: 516 MG, UNK
     Route: 042
     Dates: end: 20170330
  5. PEMETREXED. [Suspect]
     Active Substance: PEMETREXED
     Dosage: 1000 MG, UNK
     Route: 042
     Dates: end: 20170726
  6. PEMETREXED. [Suspect]
     Active Substance: PEMETREXED
     Indication: NON-SMALL CELL LUNG CANCER
     Dosage: 1000 MG, UNK
     Route: 042
     Dates: start: 20161214

REACTIONS (2)
  - Renal failure [Fatal]
  - Sepsis [Unknown]

NARRATIVE: CASE EVENT DATE: 20170813
